FAERS Safety Report 8592898 (Version 6)
Quarter: 2014Q2

REPORT INFORMATION
  Report Type: Spontaneous
  Country: US (occurrence: US)
  Receive Date: 20120604
  Receipt Date: 20140417
  Transmission Date: 20141212
  Serious: Yes (Hospitalization, Other)
  Sender: FDA-Public Use
  Company Number: US-ASTRAZENECA-2012SE34838

PATIENT
  Age: 679 Month
  Sex: Female
  Weight: 78.9 kg

DRUGS (12)
  1. NEXIUM [Suspect]
     Route: 048
     Dates: start: 20001121
  2. NEXIUM [Suspect]
     Route: 048
     Dates: start: 2004, end: 2011
  3. NEXIUM [Suspect]
     Route: 048
     Dates: start: 20080112
  4. PRILOSEC OTC [Suspect]
     Dosage: DALIY
     Route: 048
     Dates: start: 2010, end: 2013
  5. EFFEXOR XL [Concomitant]
  6. DIAVAN [Concomitant]
  7. TAMOXITINE [Concomitant]
  8. TAMOXIFEN [Concomitant]
  9. DIOVAN HCT [Concomitant]
  10. KLONOPIN [Concomitant]
  11. LORTAB [Concomitant]
  12. MOTRIN [Concomitant]

REACTIONS (6)
  - Wrist fracture [Unknown]
  - Breast cancer [Unknown]
  - Upper limb fracture [Unknown]
  - Fall [Unknown]
  - Radius fracture [Unknown]
  - Osteoporosis [Unknown]
